FAERS Safety Report 25700455 (Version 2)
Quarter: 2025Q3

REPORT INFORMATION
  Report Type: Report from Study
  Country: US (occurrence: US)
  Receive Date: 20250819
  Receipt Date: 20250925
  Transmission Date: 20251020
  Serious: Yes (Other)
  Sender: MALLINCKRODT
  Company Number: US-MALLINCKRODT-MNK202504944

PATIENT
  Sex: Male

DRUGS (3)
  1. CORTICOTROPIN [Suspect]
     Active Substance: CORTICOTROPIN
     Indication: Rheumatoid arthritis
  2. CORTICOTROPIN [Suspect]
     Active Substance: CORTICOTROPIN
  3. PREDNISONE [Concomitant]
     Active Substance: PREDNISONE

REACTIONS (5)
  - Rheumatoid arthritis [Unknown]
  - Stress [Unknown]
  - Anxiety [Unknown]
  - Abdominal discomfort [Unknown]
  - Abdominal pain upper [Unknown]
